FAERS Safety Report 6958332-9 (Version None)
Quarter: 2010Q3

REPORT INFORMATION
  Report Type: 
  Country: None (occurrence: None)
  Receive Date: 20100831
  Receipt Date: 20100823
  Transmission Date: 20110219
  Serious: Yes (Other)
  Sender: FDA-Public Use
  Company Number: B0671632A

PATIENT
  Age: 26 Year
  Sex: Female

DRUGS (3)
  1. ACYCLOVIR SODIUM [Suspect]
     Indication: ENCEPHALITIS BRAIN STEM
     Route: 065
  2. STEROID PULSE THERAPY [Suspect]
  3. UNKNOWN DRUG [Suspect]
     Indication: EPILEPSY

REACTIONS (3)
  - ANAEMIA [None]
  - DRUG EXPOSURE DURING PREGNANCY [None]
  - LIVE BIRTH [None]
